FAERS Safety Report 7721267-8 (Version None)
Quarter: 2011Q3

REPORT INFORMATION
  Report Type: 
  Country: None (occurrence: None)
  Receive Date: 20110825
  Receipt Date: 20110812
  Transmission Date: 20111222
  Serious: Yes (Life-Threatening)
  Sender: FDA-Public Use
  Company Number: 1000023056

PATIENT
  Sex: Female

DRUGS (4)
  1. CITALOPRAM HYDROBROMIDE [Suspect]
  2. SEROQUEL [Suspect]
     Dosage: 100 MG (100 MG,1 IN 1 D)
  3. LITHIUM CARBONATE [Concomitant]
  4. EPILIM (VALPROATE SODIUM) (VALPROATE SODIUM) [Concomitant]

REACTIONS (3)
  - MATERNAL EXPOSURE DURING PREGNANCY [None]
  - POSTPARTUM HAEMORRHAGE [None]
  - MATERNAL EXPOSURE BEFORE PREGNANCY [None]
